FAERS Safety Report 5052097-6 (Version None)
Quarter: 2006Q3

REPORT INFORMATION
  Report Type: 
  Country: None (occurrence: None)
  Receive Date: 20060711
  Receipt Date: 20060621
  Transmission Date: 20061208
  Serious: Yes (Hospitalization)
  Sender: FDA-Public Use
  Company Number: GR200606004764

PATIENT
  Age: 10 Year
  Sex: Female
  Weight: 25 kg

DRUGS (1)
  1. CECLOR [Suspect]
     Indication: PHARYNGITIS
     Dosage: 15 ML, DAILY (1/D), ONLY 2 DOSES GIVEN, ORAL
     Route: 048
     Dates: start: 20060603, end: 20060603

REACTIONS (2)
  - HYPERSENSITIVITY [None]
  - VISUAL ACUITY REDUCED [None]
